FAERS Safety Report 6765785-8 (Version None)
Quarter: 2010Q2

REPORT INFORMATION
  Report Type: 
  Country: None (occurrence: None)
  Receive Date: 20100611
  Receipt Date: 20100607
  Transmission Date: 20101027
  Serious: Yes (Life-Threatening)
  Sender: FDA-Public Use
  Company Number: CA-ASTRAZENECA-2010SE26566

PATIENT
  Age: 59 Year
  Sex: Female
  Weight: 63 kg

DRUGS (7)
  1. CRESTOR [Suspect]
     Route: 048
  2. APO-CAL [Concomitant]
     Route: 048
  3. ASPIRIN [Concomitant]
  4. STRESS FORMULA MULTI-B COMP [Concomitant]
  5. VIT C [Concomitant]
  6. VITAMIN D [Concomitant]
     Route: 048
  7. VITOGEN SPECTRUM FORTE [Concomitant]
     Route: 048

REACTIONS (3)
  - ANAPHYLACTIC SHOCK [None]
  - SWOLLEN TONGUE [None]
  - URTICARIA [None]
